FAERS Safety Report 19772975 (Version 2)
Quarter: 2021Q3

REPORT INFORMATION
  Report Type: Spontaneous
  Country: CA (occurrence: CA)
  Receive Date: 20210901
  Receipt Date: 20210929
  Transmission Date: 20211014
  Serious: Yes (Other)
  Sender: FDA-Public Use
  Company Number: CA-CELLTRION INC.-2021CA011821

PATIENT

DRUGS (6)
  1. INFLECTRA [Suspect]
     Active Substance: INFLIXIMAB-DYYB
     Indication: COLITIS ULCERATIVE
     Dosage: 400 MG, Q 0, 2, 6 WEEKS THEN EVERY 8 WEEKS
     Route: 041
     Dates: start: 20210806
  2. 5?ASA [Concomitant]
     Active Substance: MESALAMINE
     Dosage: UNK
  3. INFLECTRA [Suspect]
     Active Substance: INFLIXIMAB-DYYB
     Dosage: 400 MG, Q 0, 2, 6 WEEKS THEN EVERY 8 WEEKS
     Route: 041
     Dates: start: 20210916
  4. INFLECTRA [Suspect]
     Active Substance: INFLIXIMAB-DYYB
     Dosage: 400 MG, Q 0, 2, 6 WEEKS THEN EVERY 8 WEEKS
     Route: 041
     Dates: start: 20210818
  5. MEZAVANT [Concomitant]
     Active Substance: MESALAMINE
     Dosage: UNK
  6. PREDNISON [Concomitant]
     Active Substance: PREDNISONE
     Dosage: UNK

REACTIONS (7)
  - Dizziness [Recovered/Resolved]
  - Nausea [Unknown]
  - Heart rate decreased [Unknown]
  - Decorticate posture [Unknown]
  - Condition aggravated [Unknown]
  - Dyskinesia [Unknown]
  - Staring [Unknown]

NARRATIVE: CASE EVENT DATE: 20210806
